FAERS Safety Report 19873703 (Version 3)
Quarter: 2022Q1

REPORT INFORMATION
  Report Type: Report from Study
  Country: JP (occurrence: None)
  Receive Date: 20210923
  Receipt Date: 20220104
  Transmission Date: 20220423
  Serious: Yes (Death)
  Sender: FDA-Public Use
  Company Number: JP-MERCK HEALTHCARE KGAA-9207298

PATIENT
  Age: 62 Year
  Sex: Male
  Weight: 63 kg

DRUGS (8)
  1. BAVENCIO [Suspect]
     Active Substance: AVELUMAB
     Indication: Metastatic renal cell carcinoma
     Route: 042
     Dates: start: 20200226, end: 20200730
  2. BAVENCIO [Suspect]
     Active Substance: AVELUMAB
     Route: 042
     Dates: start: 20201007, end: 20201209
  3. INLYTA [Suspect]
     Active Substance: AXITINIB
     Indication: Metastatic renal cell carcinoma
     Route: 048
     Dates: start: 20200226, end: 20200730
  4. INLYTA [Suspect]
     Active Substance: AXITINIB
     Route: 048
     Dates: start: 20200902, end: 20201006
  5. INLYTA [Suspect]
     Active Substance: AXITINIB
     Route: 048
     Dates: start: 20201007, end: 20201209
  6. CALONAL [Concomitant]
     Active Substance: ACETAMINOPHEN
     Indication: Premedication
     Route: 048
     Dates: start: 20200226
  7. DIPHENHYDRAMINE [Concomitant]
     Active Substance: DIPHENHYDRAMINE
     Indication: Premedication
     Dates: start: 20200226
  8. AMLODIPINE BESYLATE [Concomitant]
     Active Substance: AMLODIPINE BESYLATE
     Indication: Hypertension
     Route: 048
     Dates: end: 20210212

REACTIONS (2)
  - Cerebral infarction [Fatal]
  - Renal cell carcinoma [Fatal]
